FAERS Safety Report 6287903-0 (Version None)
Quarter: 2009Q3

REPORT INFORMATION
  Report Type: 
  Country: None (occurrence: None)
  Receive Date: 20090729
  Receipt Date: 20090715
  Transmission Date: 20100115
  Serious: Yes (Death, Hospitalization, Other)
  Sender: FDA-Public Use
  Company Number: PT-JNJFOC-20090403785

PATIENT
  Sex: Male

DRUGS (4)
  1. REMICADE [Suspect]
     Indication: PSORIASIS
     Dosage: TOTAL INFUSIONS: 5
     Route: 042
  2. ADALAT [Concomitant]
     Indication: HYPERTENSION
  3. DAFALGAN [Concomitant]
     Indication: OSTEOARTHRITIS
  4. VOLTAREN [Concomitant]
     Indication: ARTHRITIS

REACTIONS (4)
  - ERYTHRODERMIC PSORIASIS [None]
  - SEPTIC SHOCK [None]
  - STAPHYLOCOCCAL INFECTION [None]
  - TUBERCULOSIS [None]
